FAERS Safety Report 10078886 (Version 1)
Quarter: 2014Q2

REPORT INFORMATION
  Report Type: Spontaneous
  Country: ZA (occurrence: ZA)
  Receive Date: 20140415
  Receipt Date: 20140415
  Transmission Date: 20141212
  Serious: Yes (Hospitalization)
  Sender: FDA-Public Use
  Company Number: ZA-SA-2014SA042270

PATIENT
  Sex: Female
  Weight: 67 kg

DRUGS (7)
  1. CLEXANE [Suspect]
     Indication: PROPHYLAXIS
     Route: 058
     Dates: start: 20131028
  2. LANTUS [Suspect]
     Indication: TYPE 1 DIABETES MELLITUS
     Dosage: DOSE:16 UNIT(S)
     Route: 058
  3. APIDRA [Suspect]
     Indication: TYPE 1 DIABETES MELLITUS
     Dosage: DOSE:7 UNIT(S)
     Route: 058
  4. ADALAT XL [Concomitant]
     Route: 048
     Dates: start: 20140214, end: 20140221
  5. ZINACEF [Concomitant]
     Route: 048
     Dates: start: 20140211, end: 20140216
  6. ZINNAT [Concomitant]
     Route: 048
     Dates: start: 20140211, end: 20140216
  7. CELESTONE [Concomitant]
     Route: 030
     Dates: start: 20140211, end: 20140212

REACTIONS (3)
  - Premature labour [Unknown]
  - Exposure during pregnancy [Unknown]
  - Haematemesis [Unknown]
